FAERS Safety Report 15411624 (Version 2)
Quarter: 2018Q4

REPORT INFORMATION
  Report Type: Other
  Country: IT (occurrence: IT)
  Receive Date: 20180921
  Receipt Date: 20181005
  Transmission Date: 20190204
  Serious: Yes (Other)
  Sender: FDA-Public Use
  Company Number: IT-MACLEODS PHARMACEUTICALS US LTD-MAC2018016606

PATIENT

DRUGS (1)
  1. LEVOFLOXACIN. [Suspect]
     Active Substance: LEVOFLOXACIN
     Indication: LUNG INFECTION
     Dosage: UNK
     Route: 065
     Dates: start: 20180719, end: 20180721

REACTIONS (3)
  - Renal impairment [Unknown]
  - Dyspnoea at rest [Unknown]
  - Anxiety [Unknown]

NARRATIVE: CASE EVENT DATE: 20180719
